FAERS Safety Report 11552641 (Version 2)
Quarter: 2015Q4

REPORT INFORMATION
  Report Type: Spontaneous
  Country: BR (occurrence: BR)
  Receive Date: 20150925
  Receipt Date: 20151009
  Transmission Date: 20160304
  Serious: Yes (Hospitalization)
  Sender: FDA-Public Use
  Company Number: BR-NOVOPROD-464800

PATIENT
  Age: 55 Year
  Sex: Male

DRUGS (1)
  1. NOVORAPID [Suspect]
     Active Substance: INSULIN ASPART
     Indication: LATENT AUTOIMMUNE DIABETES IN ADULTS
     Dosage: 28 IU, QD (7U MORNING, 7U AFTER MEALS, 14U BEFORE SLEEP)
     Route: 065

REACTIONS (1)
  - Ketoacidosis [Recovered/Resolved]

NARRATIVE: CASE EVENT DATE: 201206
